FAERS Safety Report 24568804 (Version 1)
Quarter: 2024Q4

REPORT INFORMATION
  Report Type: Spontaneous
  Country: US (occurrence: US)
  Receive Date: 20241031
  Receipt Date: 20241031
  Transmission Date: 20250115
  Serious: Yes (Other)
  Sender: REGENERON
  Company Number: US-REGENERON PHARMACEUTICALS, INC.-2024-036376

PATIENT
  Sex: Female

DRUGS (2)
  1. LIBTAYO [Suspect]
     Active Substance: CEMIPLIMAB-RWLC
     Indication: Non-small cell lung cancer
     Dosage: UNK, Q3W
     Dates: start: 202310
  2. XARELTO [Concomitant]
     Active Substance: RIVAROXABAN
     Indication: Factor V deficiency

REACTIONS (3)
  - Adrenal insufficiency [Unknown]
  - Nausea [Unknown]
  - Fatigue [Unknown]
